FAERS Safety Report 4913110-7 (Version None)
Quarter: 2006Q1

REPORT INFORMATION
  Report Type: 
  Country: None (occurrence: None)
  Receive Date: 20060210
  Receipt Date: 20060131
  Transmission Date: 20060701
  Serious: Yes (Other)
  Sender: FDA-Public Use
  Company Number: 2006016555

PATIENT
  Age: 48 Year
  Sex: Male
  Weight: 81.6475 kg

DRUGS (6)
  1. NEURONTIN [Suspect]
     Indication: TRIGEMINAL NEURALGIA
     Dosage: 4800 MG (800  MG, 6 IN 1 D), ORAL
     Route: 048
     Dates: start: 20051201
  2. PERCOCET [Concomitant]
  3. KLONOPIN [Concomitant]
  4. MORPHINE SULFATE [Concomitant]
  5. DILTIAZEM [Concomitant]
  6. TOPAMAX [Concomitant]

REACTIONS (2)
  - FEELING ABNORMAL [None]
  - SUICIDAL IDEATION [None]
